FAERS Safety Report 4911891-X (Version None)
Quarter: 2006Q1

REPORT INFORMATION
  Report Type: 
  Country: None (occurrence: None)
  Receive Date: 20060213
  Receipt Date: 20060213
  Transmission Date: 20060701
  Serious: Yes (Death)
  Sender: FDA-Public Use
  Company Number: None

PATIENT
  Age: 49 Year
  Sex: Female
  Weight: 107.0489 kg

DRUGS (8)
  1. LYRICA [Suspect]
     Indication: PAIN
     Dosage: 50 MG BID PO
     Route: 048
     Dates: start: 20051031
  2. CELEBREX [Suspect]
     Indication: DIABETIC NEUROPATHY
     Dosage: 200 MG 1-2 X/DAY
     Dates: end: 20050101
  3. INSULIN [Concomitant]
  4. LIPITOR [Concomitant]
  5. LISINOPRIL [Concomitant]
  6. GLUCOPHAGE [Concomitant]
  7. SKELAXIN [Concomitant]
  8. LEVETHYROXINE [Concomitant]

REACTIONS (2)
  - FIBROMYALGIA [None]
  - PAIN [None]
